FAERS Safety Report 8788979 (Version 2)
Quarter: 2012Q4

REPORT INFORMATION
  Report Type: 
  Country: US (occurrence: US)
  Receive Date: 20120917
  Receipt Date: 20120926
  Transmission Date: 20130627
  Serious: Yes (Hospitalization)
  Sender: FDA-Public Use
  Company Number: US-PFIZER INC-2012228084

PATIENT
  Sex: Female

DRUGS (4)
  1. EFFEXOR XR [Suspect]
     Dosage: UNK
     Dates: start: 20020102, end: 20120917
  2. EFFEXOR XR [Suspect]
     Dosage: UNK
     Dates: start: 20120913
  3. CELEBREX [Suspect]
     Dosage: UNK
     Dates: start: 20020102, end: 20120917
  4. ACCUPRIL [Suspect]
     Dosage: UNK
     Dates: start: 20020102, end: 20120917

REACTIONS (3)
  - Gastrointestinal disorder [Unknown]
  - Sepsis [Unknown]
  - Ulcer [Unknown]
